FAERS Safety Report 18193337 (Version 1)
Quarter: 2020Q3

REPORT INFORMATION
  Report Type: Spontaneous
  Country: US (occurrence: US)
  Receive Date: 20200825
  Receipt Date: 20200825
  Transmission Date: 20201103
  Serious: Yes (Other)
  Sender: FDA-Public Use
  Company Number: US-MACLEODS PHARMACEUTICALS US LTD-MAC2020027776

PATIENT

DRUGS (2)
  1. TRIAMCINOLONE ACETONIDE. [Suspect]
     Active Substance: TRIAMCINOLONE ACETONIDE
     Indication: MACULAR OEDEMA
     Dosage: SUBTENON INJECTION OF TRIAMCINOLONE ACETONIDE, SUPEROTEMPORAL CONJUNCTIVAL
     Route: 047
  2. TRIAMCINOLONE ACETONIDE. [Suspect]
     Active Substance: TRIAMCINOLONE ACETONIDE
     Dosage: UNK, SUBTENON INJECTION OF TRIAMCINOLONE ACETONIDE, SUPEROTEMPORAL CONJUNCTIVAL
     Route: 047

REACTIONS (2)
  - Orbital infection [Recovered/Resolved]
  - Staphylococcal infection [Recovered/Resolved]
